FAERS Safety Report 7533566-3 (Version None)
Quarter: 2011Q2

REPORT INFORMATION
  Report Type: 
  Country: None (occurrence: None)
  Receive Date: 20110608
  Receipt Date: 20110526
  Transmission Date: 20111010
  Serious: Yes (Hospitalization, Other)
  Sender: FDA-Public Use
  Company Number: JP-UCBSA-017908

PATIENT
  Sex: Female

DRUGS (5)
  1. RABEPRAZOLE SODIUM [Concomitant]
     Dosage: QAM
     Dates: start: 20091002
  2. CERTOLIZUMAB PEGOL [Suspect]
     Indication: RHEUMATOID ARTHRITIS
     Route: 058
     Dates: start: 20100324, end: 20100101
  3. PREDNISOLONE [Suspect]
     Indication: RHEUMATOID ARTHRITIS
     Dosage: QAM
     Route: 048
     Dates: start: 20091002
  4. METHOTREXATE [Suspect]
     Indication: RHEUMATOID ARTHRITIS
     Dosage: INTERRUPTED ON 13, 19 AND 20-AUG-2010,8MG WEEKLY (4 MG-2MG-2MG)
     Route: 048
     Dates: start: 20091002
  5. SODIUM RISEDRONATE HYDRATE [Concomitant]
     Dosage: 17.5MG/WEEK, AWAKENING.
     Dates: start: 20091002

REACTIONS (1)
  - URINARY TRACT INFECTION [None]
